FAERS Safety Report 7753792-8 (Version None)
Quarter: 2011Q3

REPORT INFORMATION
  Report Type: 
  Country: None (occurrence: None)
  Receive Date: 20110915
  Receipt Date: 20110909
  Transmission Date: 20111222
  Serious: Yes (Hospitalization)
  Sender: FDA-Public Use
  Company Number: RU-AMGEN-RUSCT2011014077

PATIENT
  Age: 69 Year
  Sex: Female

DRUGS (4)
  1. ROMIPLOSTIM [Suspect]
     Indication: IDIOPATHIC THROMBOCYTOPENIC PURPURA
     Dosage: UNK UNK, QWK
     Route: 058
     Dates: start: 20101019
  2. MEBEVERINE [Concomitant]
  3. DOMPERIDONE [Concomitant]
  4. PANCREATIN TRIPLE STRENGTH CAP [Concomitant]

REACTIONS (1)
  - CHOLECYSTITIS [None]
